FAERS Safety Report 6931156-4 (Version None)
Quarter: 2010Q3

REPORT INFORMATION
  Report Type: 
  Country: None (occurrence: None)
  Receive Date: 20100818
  Receipt Date: 20100810
  Transmission Date: 20110219
  Serious: Yes (Hospitalization)
  Sender: FDA-Public Use
  Company Number: US-AMGEN-KDL428286

PATIENT
  Sex: Male
  Weight: 81.3 kg

DRUGS (4)
  1. ENBREL [Suspect]
     Indication: RHEUMATOID ARTHRITIS
     Route: 058
     Dates: start: 20090713
  2. METHOTREXATE [Concomitant]
     Dates: start: 20010101
  3. PREDNISONE [Concomitant]
  4. LEFLUNOMIDE [Concomitant]

REACTIONS (5)
  - BLOOD PRESSURE INCREASED [None]
  - CHEST PAIN [None]
  - GALLBLADDER DISORDER [None]
  - GASTRITIS [None]
  - WEIGHT DECREASED [None]
